FAERS Safety Report 22102463 (Version 2)
Quarter: 2023Q1

REPORT INFORMATION
  Report Type: Spontaneous
  Country: FR (occurrence: FR)
  Receive Date: 20230316
  Receipt Date: 20230318
  Transmission Date: 20230417
  Serious: Yes (Other)
  Sender: FDA-Public Use
  Company Number: FR-CELLTRION INC.-2023FR004951

PATIENT

DRUGS (11)
  1. INFLIXIMAB [Suspect]
     Active Substance: INFLIXIMAB
     Indication: Tuberculoma of central nervous system
     Dosage: 10 MG/KG, EVERY 1 MONTH
     Route: 042
  2. INFLIXIMAB [Suspect]
     Active Substance: INFLIXIMAB
     Indication: Immune reconstitution inflammatory syndrome
     Dosage: 10 MG/KG, EVERY 1 MONTH
     Route: 042
  3. PREDNISOLONE [Concomitant]
     Active Substance: PREDNISOLONE
     Indication: Tuberculoma of central nervous system
     Dosage: 5 MG, EVERY 1 DAY, TAPERED DOSE;
  4. PREDNISOLONE [Concomitant]
     Active Substance: PREDNISOLONE
     Dosage: 0.75 MG/KG, EVERY 1 DAY, TAPERED DOSE;
  5. PREDNISOLONE [Concomitant]
     Active Substance: PREDNISOLONE
     Dosage: UNKNOWN TAPERED DOSE;
  6. PREDNISOLONE [Concomitant]
     Active Substance: PREDNISOLONE
     Dosage: 1 MG/KG, EVERY 1 DAY
  7. PREDNISOLONE [Concomitant]
     Active Substance: PREDNISOLONE
     Dosage: 0.25 MG/KG, EVERY1 DAY, TAPERED DOSE;
  8. DEXAMETHASONE [Concomitant]
     Active Substance: DEXAMETHASONE
     Indication: Tuberculoma of central nervous system
     Dosage: UNKNOWN; 3-DAY COURSE OF HIGH-DOSE
  9. PYRAZINAMIDE [Concomitant]
     Active Substance: PYRAZINAMIDE
     Indication: Tuberculosis
     Dosage: UNKNOWN
  10. RIFAMPIN [Concomitant]
     Active Substance: RIFAMPIN
     Indication: Tuberculosis
     Dosage: UNKNOWN
  11. ISONIAZID [Concomitant]
     Active Substance: ISONIAZID
     Indication: Tuberculosis
     Dosage: UNKNOWN

REACTIONS (4)
  - Tuberculoma of central nervous system [Recovered/Resolved with Sequelae]
  - Eyelid ptosis [Recovered/Resolved with Sequelae]
  - Drug effective for unapproved indication [Unknown]
  - Off label use [Unknown]
